FAERS Safety Report 6191215-3 (Version None)
Quarter: 2009Q2

REPORT INFORMATION
  Report Type: 
  Country: None (occurrence: None)
  Receive Date: 20090515
  Receipt Date: 20090509
  Transmission Date: 20091009
  Serious: Yes (Hospitalization)
  Sender: FDA-Public Use
  Company Number: PL-JNJFOC-20090400169

PATIENT
  Sex: Female
  Weight: 62 kg

DRUGS (58)
  1. GOLIMUMAB [Suspect]
     Route: 058
  2. GOLIMUMAB [Suspect]
     Route: 058
  3. GOLIMUMAB [Suspect]
     Route: 058
  4. GOLIMUMAB [Suspect]
     Route: 058
  5. GOLIMUMAB [Suspect]
     Route: 058
  6. GOLIMUMAB [Suspect]
     Route: 058
  7. GOLIMUMAB [Suspect]
     Route: 058
  8. GOLIMUMAB [Suspect]
     Route: 058
  9. GOLIMUMAB [Suspect]
     Route: 058
  10. GOLIMUMAB [Suspect]
     Route: 058
  11. GOLIMUMAB [Suspect]
     Route: 058
  12. GOLIMUMAB [Suspect]
     Route: 058
  13. GOLIMUMAB [Suspect]
     Route: 058
  14. GOLIMUMAB [Suspect]
     Route: 058
  15. GOLIMUMAB [Suspect]
     Route: 058
  16. GOLIMUMAB [Suspect]
     Route: 058
  17. GOLIMUMAB [Suspect]
     Route: 058
  18. GOLIMUMAB [Suspect]
     Route: 058
  19. GOLIMUMAB [Suspect]
     Route: 058
  20. GOLIMUMAB [Suspect]
     Route: 058
  21. GOLIMUMAB [Suspect]
     Route: 058
  22. GOLIMUMAB [Suspect]
     Route: 058
  23. GOLIMUMAB [Suspect]
     Route: 058
  24. GOLIMUMAB [Suspect]
     Route: 058
  25. GOLIMUMAB [Suspect]
     Route: 058
  26. GOLIMUMAB [Suspect]
     Route: 058
  27. GOLIMUMAB [Suspect]
     Route: 058
  28. GOLIMUMAB [Suspect]
     Route: 058
  29. GOLIMUMAB [Suspect]
     Route: 058
  30. GOLIMUMAB [Suspect]
     Route: 058
  31. GOLIMUMAB [Suspect]
     Indication: RHEUMATOID ARTHRITIS
     Route: 058
  32. METHOTREXATE [Suspect]
     Route: 048
  33. METHOTREXATE [Suspect]
     Route: 048
  34. METHOTREXATE [Suspect]
     Route: 048
  35. METHOTREXATE [Suspect]
     Route: 048
  36. METHOTREXATE [Suspect]
     Route: 048
  37. METHOTREXATE [Suspect]
     Route: 048
  38. METHOTREXATE [Suspect]
     Route: 048
  39. METHOTREXATE [Suspect]
     Route: 048
  40. METHOTREXATE [Suspect]
     Route: 048
  41. METHOTREXATE [Suspect]
     Route: 048
  42. METHOTREXATE [Suspect]
     Route: 048
  43. METHOTREXATE [Suspect]
     Route: 048
  44. METHOTREXATE [Suspect]
     Route: 048
  45. METHOTREXATE [Suspect]
     Route: 048
  46. METHOTREXATE [Suspect]
     Route: 048
  47. METHOTREXATE [Suspect]
     Route: 048
  48. METHOTREXATE [Suspect]
     Route: 048
  49. METHOTREXATE [Suspect]
     Route: 048
  50. METHOTREXATE [Suspect]
     Route: 048
  51. METHOTREXATE [Suspect]
     Route: 048
  52. METHOTREXATE [Suspect]
     Indication: RHEUMATOID ARTHRITIS
     Route: 048
  53. NAPROXEN [Concomitant]
     Route: 048
  54. CALCIUM CARBONATE [Concomitant]
     Route: 048
  55. OMEPRAZOLE [Concomitant]
     Route: 048
  56. METHYLPREDNISOLONE 4MG TAB [Concomitant]
     Route: 048
  57. FOLIC ACID [Concomitant]
     Route: 048
  58. METHOTREXATE [Concomitant]
     Route: 048

REACTIONS (1)
  - PNEUMONIA [None]
